FAERS Safety Report 9177928 (Version 2)
Quarter: 2013Q2

REPORT INFORMATION
  Report Type: Spontaneous
  Country: DK (occurrence: DK)
  Receive Date: 20130321
  Receipt Date: 20130415
  Transmission Date: 20140414
  Serious: Yes (Other)
  Sender: FDA-Public Use
  Company Number: DK-PFIZER INC-2013092692

PATIENT
  Sex: 0

DRUGS (2)
  1. CYTOTEC [Suspect]
     Indication: PROLONGED PREGNANCY
     Dosage: 50 UG, ONCE
     Route: 064
     Dates: start: 2003, end: 2003
  2. CYTOTEC [Suspect]
     Indication: LABOUR INDUCTION

REACTIONS (3)
  - Exposure during pregnancy [Unknown]
  - Meconium in amniotic fluid [Unknown]
  - Apgar score low [Unknown]
